FAERS Safety Report 23685503 (Version 2)
Quarter: 2024Q3

REPORT INFORMATION
  Report Type: Spontaneous
  Country: GB (occurrence: GB)
  Receive Date: 20240329
  Receipt Date: 20240808
  Transmission Date: 20241017
  Serious: Yes (Other)
  Sender: JOHNSON AND JOHNSON
  Company Number: GB-JNJFOC-20240357369

PATIENT
  Age: 55 Year
  Sex: Male
  Weight: 124 kg

DRUGS (14)
  1. TREMFYA [Suspect]
     Active Substance: GUSELKUMAB
     Indication: Psoriasis
     Route: 058
     Dates: start: 2019, end: 202106
  2. TREMFYA [Suspect]
     Active Substance: GUSELKUMAB
     Indication: Psoriatic arthropathy
  3. TREMFYA [Suspect]
     Active Substance: GUSELKUMAB
  4. MIRTAZAPINE [Concomitant]
     Active Substance: MIRTAZAPINE
     Route: 048
     Dates: end: 20220224
  5. FOLIC ACID [Concomitant]
     Active Substance: FOLIC ACID
     Dosage: ONE EACH DAY EXCEPT THE DAY WHEN HAVING METHOTREXATE
     Route: 048
     Dates: end: 20220606
  6. METHOTREXATE [Concomitant]
     Active Substance: METHOTREXATE
     Route: 048
     Dates: end: 20220616
  7. PROMETHAZINE HYDROCHLORIDE [Concomitant]
     Active Substance: PROMETHAZINE HYDROCHLORIDE
     Indication: Anxiety
     Dosage: 1-2 AS NEEDED MAX 4 PER DAY
     Route: 048
     Dates: end: 20220616
  8. FLUOXETINE [Concomitant]
     Active Substance: FLUOXETINE HYDROCHLORIDE
     Dosage: DOSAGE HAS CHANGED DURING THE EFFECTIVE PERIOD
     Route: 048
     Dates: end: 20211104
  9. GABAPENTIN [Concomitant]
     Active Substance: GABAPENTIN
     Dosage: 2 TABLETS 3 TIMES DAILY
     Route: 048
     Dates: end: 20220616
  10. EZETIMIBE [Concomitant]
     Active Substance: EZETIMIBE
     Route: 048
     Dates: end: 20220616
  11. FENTANYL [Concomitant]
     Active Substance: FENTANYL\FENTANYL CITRATE
     Dosage: 25 MICROGRAM/HOUR
     Dates: end: 20201209
  12. FENTANYL [Concomitant]
     Active Substance: FENTANYL\FENTANYL CITRATE
     Dosage: 25 MICROGRAM/HOUR
     Dates: end: 20220210
  13. MORPHINE SULFATE [Concomitant]
     Active Substance: MORPHINE SULFATE
     Indication: Pain
     Dosage: 10 MG/ML?IF NEEDED
     Dates: end: 20220107
  14. OMEPRAZOLE [Concomitant]
     Active Substance: OMEPRAZOLE
     Route: 048
     Dates: end: 20210524

REACTIONS (1)
  - Generalised tonic-clonic seizure [Recovered/Resolved]

NARRATIVE: CASE EVENT DATE: 20210601
